FAERS Safety Report 24193381 (Version 1)
Quarter: 2024Q3

REPORT INFORMATION
  Report Type: Report from Study
  Country: BR (occurrence: BR)
  Receive Date: 20240809
  Receipt Date: 20240809
  Transmission Date: 20241016
  Serious: Yes (Other)
  Sender: ROCHE
  Company Number: None

PATIENT

DRUGS (3)
  1. TRASTUZUMAB [Suspect]
     Active Substance: TRASTUZUMAB
     Indication: HER2 positive breast cancer
     Route: 065
  2. PERTUZUMAB [Suspect]
     Active Substance: PERTUZUMAB
     Indication: HER2 positive breast cancer
     Route: 065
  3. TRASTUZUMAB-DKST [Suspect]
     Active Substance: TRASTUZUMAB-DKST
     Indication: HER2 positive breast cancer
     Route: 065

REACTIONS (12)
  - Papillary thyroid cancer [Recovering/Resolving]
  - Hypertension [Recovered/Resolved]
  - Hypoglycaemia [Recovered/Resolved]
  - Diarrhoea [Not Recovered/Not Resolved]
  - Musculoskeletal disorder [Unknown]
  - Connective tissue disorder [Unknown]
  - Ill-defined disorder [Unknown]
  - Infection [Unknown]
  - Nervous system disorder [Unknown]
  - Metabolic disorder [Unknown]
  - Skin disorder [Unknown]
  - Breast disorder [Unknown]
